FAERS Safety Report 25245986 (Version 1)
Quarter: 2025Q2

REPORT INFORMATION
  Report Type: Spontaneous
  Country: US (occurrence: None)
  Receive Date: 20250427
  Receipt Date: 20250427
  Transmission Date: 20250717
  Serious: Yes (Hospitalization)
  Sender: FDA-CTU
  Company Number: None

PATIENT
  Sex: Female

DRUGS (1)
  1. VYNDAMAX [Suspect]
     Active Substance: TAFAMIDIS
     Indication: Dilated cardiomyopathy
     Dosage: 61 MG/ML DAILY ORAL
     Route: 048
     Dates: start: 20250318

REACTIONS (1)
  - Palpitations [None]
